FAERS Safety Report 6804303-2 (Version None)
Quarter: 2010Q2

REPORT INFORMATION
  Report Type: 
  Country: None (occurrence: None)
  Receive Date: 20100628
  Receipt Date: 20070319
  Transmission Date: 20101027
  Serious: No
  Sender: FDA-Public Use
  Company Number: US-PFIZER INC-2007005768

PATIENT
  Sex: Female
  Weight: 59.87 kg

DRUGS (3)
  1. CADUET [Suspect]
     Indication: BLOOD CHOLESTEROL
  2. CENTRUM SILVER [Concomitant]
  3. TYLENOL [Concomitant]

REACTIONS (2)
  - BLOOD CHOLESTEROL INCREASED [None]
  - MYALGIA [None]
